FAERS Safety Report 8187297-X (Version None)
Quarter: 2012Q1

REPORT INFORMATION
  Report Type: 
  Country: None (occurrence: None)
  Receive Date: 20120216
  Receipt Date: 20111129
  Transmission Date: 20120608
  Serious: Yes (Hospitalization)
  Sender: FDA-Public Use
  Company Number: 20111129CINRY2488

PATIENT
  Age: 48 Year
  Sex: Male

DRUGS (1)
  1. CINRYZE [Suspect]
     Indication: HEREDITARY ANGIOEDEMA
     Dosage: (3 IN 1 WK), INTRAVENOUS
     Route: 042

REACTIONS (6)
  - SWELLING [None]
  - INAPPROPRIATE SCHEDULE OF DRUG ADMINISTRATION [None]
  - PAIN [None]
  - NAUSEA [None]
  - HEREDITARY ANGIOEDEMA [None]
  - DRUG EFFECT DELAYED [None]
